FAERS Safety Report 8051255-6 (Version None)
Quarter: 2012Q1

REPORT INFORMATION
  Report Type: 
  Country: None (occurrence: None)
  Receive Date: 20120117
  Receipt Date: 20120103
  Transmission Date: 20120608
  Serious: Yes (Other)
  Sender: FDA-Public Use
  Company Number: US-BAUSCH-2012BL000095

PATIENT
  Age: 70 Year
  Sex: Female

DRUGS (1)
  1. KETOTIFEN FUMARATE [Suspect]
     Indication: OFF LABEL USE
     Route: 048

REACTIONS (1)
  - HEPATOTOXICITY [None]
